FAERS Safety Report 5729732-X (Version None)
Quarter: 2008Q2

REPORT INFORMATION
  Report Type: 
  Country: None (occurrence: None)
  Receive Date: 20080506
  Receipt Date: 20080410
  Transmission Date: 20081010
  Serious: No
  Sender: FDA-Public Use
  Company Number: US-BOEHRINGER INGELHEIM GMBH, GERMANY-2008-BP-05025BP

PATIENT
  Age: 72 Year
  Sex: Female

DRUGS (1)
  1. METACAM ORAL SUSPENSION [Suspect]
     Route: 065

REACTIONS (4)
  - ACCIDENTAL EXPOSURE [None]
  - ERYTHEMA [None]
  - IMPAIRED HEALING [None]
  - SKIN EXFOLIATION [None]
